FAERS Safety Report 11269016 (Version 1)
Quarter: 2015Q3

REPORT INFORMATION
  Report Type: Spontaneous
  Country: US (occurrence: None)
  Receive Date: 20150710
  Receipt Date: 20150710
  Transmission Date: 20151125
  Serious: Yes (Other)
  Sender: FDA-Public Use
  Company Number: US-2015VAL000425

PATIENT
  Age: 67 Year
  Sex: Female

DRUGS (2)
  1. METOPROLOL TARTRATE (METOPROLOL TARTRATE) [Suspect]
     Active Substance: METOPROLOL TARTRATE
     Indication: CONDUCTION DISORDER
  2. LOPRESSOR [Suspect]
     Active Substance: METOPROLOL TARTRATE
     Indication: CONDUCTION DISORDER
     Dosage: 50 MG, HALF 2X DAILY, FOR 30 YEARS

REACTIONS (5)
  - Inappropriate schedule of drug administration [None]
  - Product substitution issue [None]
  - Product quality issue [None]
  - Arrhythmia [None]
  - Drug ineffective [None]
